FAERS Safety Report 9163711 (Version 2)
Quarter: 2013Q2

REPORT INFORMATION
  Report Type: Spontaneous
  Country: CY (occurrence: CY)
  Receive Date: 20130314
  Receipt Date: 20130503
  Transmission Date: 20140414
  Serious: Yes (Death, Life-Threatening, Hospitalization, Other)
  Sender: FDA-Public Use
  Company Number: CY-CELGENEUS-041-50794-13031132

PATIENT
  Age: 60 Year
  Sex: Female

DRUGS (2)
  1. VIDAZA [Suspect]
     Indication: MYELODYSPLASTIC SYNDROME
     Dosage: 100 MILLIGRAM
     Route: 058
     Dates: start: 201207, end: 201302
  2. VESANOID [Concomitant]
     Indication: PRODUCT USED FOR UNKNOWN INDICATION
     Dosage: 90 MILLIGRAM
     Route: 065
     Dates: end: 201301

REACTIONS (2)
  - Pancytopenia [Fatal]
  - Pyrexia [Fatal]
